FAERS Safety Report 19902936 (Version 1)
Quarter: 2021Q4

REPORT INFORMATION
  Report Type: Other
  Country: RU (occurrence: RU)
  Receive Date: 20211001
  Receipt Date: 20211001
  Transmission Date: 20220303
  Serious: Yes (Life-Threatening, Other)
  Sender: FDA-Public Use
  Company Number: RU-ASPEN-GLO2021RU007848

PATIENT

DRUGS (2)
  1. LEUKERAN [Suspect]
     Active Substance: CHLORAMBUCIL
     Indication: Lymphocytic leukaemia
     Dosage: 18.9 MG, QD
     Route: 048
     Dates: start: 20201214, end: 20210214
  2. RITUXIMAB [Suspect]
     Active Substance: RITUXIMAB
     Indication: Lymphocytic leukaemia
     Dosage: 960 MG, QD
     Route: 042
     Dates: start: 20201214, end: 20210720

REACTIONS (1)
  - Drug ineffective [Unknown]

NARRATIVE: CASE EVENT DATE: 20210214
